FAERS Safety Report 16904013 (Version 2)
Quarter: 2019Q4

REPORT INFORMATION
  Report Type: Spontaneous
  Country: JP (occurrence: JP)
  Receive Date: 20191010
  Receipt Date: 20191021
  Transmission Date: 20200122
  Serious: Yes (Hospitalization)
  Sender: FDA-Public Use
  Company Number: JP-EISAI MEDICAL RESEARCH-EC-2019-063323

PATIENT
  Sex: Female
  Weight: 54 kg

DRUGS (2)
  1. LENVIMA [Suspect]
     Active Substance: LENVATINIB
     Indication: HEPATOCELLULAR CARCINOMA
     Route: 048
     Dates: start: 20190911, end: 20190916
  2. LENVIMA [Suspect]
     Active Substance: LENVATINIB
     Route: 048
     Dates: start: 20191003, end: 20191005

REACTIONS (3)
  - Pyrexia [Recovered/Resolved]
  - Aspartate aminotransferase increased [Recovered/Resolved]
  - Hepatic failure [Not Recovered/Not Resolved]

NARRATIVE: CASE EVENT DATE: 20190916
